FAERS Safety Report 8502915 (Version 5)
Quarter: 2013Q2

REPORT INFORMATION
  Report Type: Spontaneous
  Country: US (occurrence: US)
  Receive Date: 20120411
  Receipt Date: 20130513
  Transmission Date: 20140414
  Serious: Yes (Hospitalization, Other)
  Sender: FDA-Public Use
  Company Number: US-BIOGENIDEC-2012BI011867

PATIENT
  Age: 56 Year
  Sex: Female

DRUGS (5)
  1. AVONEX [Suspect]
     Indication: MULTIPLE SCLEROSIS
     Route: 030
     Dates: start: 20100529
  2. AVONEX [Suspect]
     Indication: MULTIPLE SCLEROSIS
     Route: 030
     Dates: start: 20110529
  3. COPAXONE [Concomitant]
     Indication: MULTIPLE SCLEROSIS
  4. AMPYRA [Concomitant]
     Indication: MULTIPLE SCLEROSIS
     Dates: start: 20100529
  5. COUMADIN [Concomitant]
     Indication: COAGULATION FACTOR DEFICIENCY
     Route: 048

REACTIONS (6)
  - Mitral valve prolapse [Not Recovered/Not Resolved]
  - Loss of consciousness [Recovered/Resolved]
  - Heart valve incompetence [Unknown]
  - Multiple sclerosis relapse [Recovered/Resolved]
  - Chest pain [Recovered/Resolved]
  - Extrasystoles [Unknown]
